FAERS Safety Report 24857248 (Version 1)
Quarter: 2025Q1

REPORT INFORMATION
  Report Type: Spontaneous
  Country: US (occurrence: None)
  Receive Date: 20250117
  Receipt Date: 20250117
  Transmission Date: 20250408
  Serious: Yes (Hospitalization)
  Sender: FDA-CTU
  Company Number: None

PATIENT
  Age: 72 Year
  Sex: Male
  Weight: 99.4 kg

DRUGS (4)
  1. CEMIPLIMAB [Suspect]
     Active Substance: CEMIPLIMAB
     Indication: Basal cell carcinoma
     Route: 041
     Dates: start: 20240807
  2. LOPRESSOR [Concomitant]
     Active Substance: METOPROLOL TARTRATE
     Dates: start: 20240304
  3. LIPITOR [Concomitant]
     Active Substance: ATORVASTATIN CALCIUM
     Dates: start: 20240304
  4. Potassium, sodium phosphates (PHOS-NAK) [Concomitant]
     Dates: start: 20240828

REACTIONS (3)
  - Cerebral ischaemia [None]
  - Atrial fibrillation [None]
  - Carotid artery stenosis [None]

NARRATIVE: CASE EVENT DATE: 20241025
